FAERS Safety Report 9709854 (Version 1)
Quarter: 2013Q4

REPORT INFORMATION
  Report Type: Spontaneous
  Country: US (occurrence: US)
  Receive Date: 20131126
  Receipt Date: 20131126
  Transmission Date: 20140711
  Serious: No
  Sender: FDA-Public Use
  Company Number: US-PFIZER INC-2013333229

PATIENT
  Age: 29 Year
  Sex: 0

DRUGS (2)
  1. ADVIL ALLERGY SINUS [Suspect]
     Indication: NASOPHARYNGITIS
     Dosage: UNK
  2. ADVIL ALLERGY SINUS [Suspect]
     Indication: SINUS DISORDER

REACTIONS (1)
  - Drug ineffective [Unknown]
